FAERS Safety Report 10207996 (Version 1)
Quarter: 2014Q2

REPORT INFORMATION
  Report Type: Spontaneous
  Country: AU (occurrence: None)
  Receive Date: 20140527
  Receipt Date: 20140527
  Transmission Date: 20141212
  Serious: Yes (Other)
  Sender: FDA-Public Use
  Company Number: 2014000153

PATIENT
  Sex: Male

DRUGS (12)
  1. ACEON (PERINDOPRIL ERBUMINE) TABLET, 8MG [Suspect]
     Indication: PRODUCT USED FOR UNKNOWN INDICATION
  2. PERINDOPRIL (PERINDOPRIL) [Suspect]
     Indication: PRODUCT USED FOR UNKNOWN INDICATION
  3. AMLODIPINE [Concomitant]
  4. ISOSORBIDE MONONITRATE [Concomitant]
  5. LASIX (FUROSEMIDE) [Concomitant]
  6. METOPROLOL [Concomitant]
  7. CLOPIDOGREL [Concomitant]
  8. XALATA (LATANOPROST) [Concomitant]
  9. NITROLINGUAL (GLYCERYL TRINITRATE) [Concomitant]
  10. ASTRIX (ACETYLSALICYLIC ACID) [Concomitant]
  11. ASPIRIN [Concomitant]
  12. ISOMOT [Concomitant]

REACTIONS (10)
  - Syncope [None]
  - Accidental overdose [None]
  - General physical health deterioration [None]
  - Drug interaction [None]
  - Orthostatic hypotension [None]
  - Lethargy [None]
  - Somnolence [None]
  - Skin discolouration [None]
  - Feeling abnormal [None]
  - Fall [None]
